FAERS Safety Report 8280025-9 (Version None)
Quarter: 2012Q2

REPORT INFORMATION
  Report Type: 
  Country: None (occurrence: None)
  Receive Date: 20120412
  Receipt Date: 20110830
  Transmission Date: 20120825
  Serious: No
  Sender: FDA-Public Use
  Company Number: US-ASTRAZENECA-2011SE51915

PATIENT
  Age: 66 Year
  Sex: Female
  Weight: 83.9 kg

DRUGS (3)
  1. NEXIUM [Suspect]
     Indication: GASTROOESOPHAGEAL REFLUX DISEASE
     Route: 048
  2. VITAMIN TAB [Concomitant]
  3. IBUPROFEN [Concomitant]

REACTIONS (2)
  - DIARRHOEA [None]
  - ACCIDENTAL OVERDOSE [None]
